FAERS Safety Report 14588044 (Version 13)
Quarter: 2019Q1

REPORT INFORMATION
  Report Type: Report from Study
  Country: US (occurrence: US)
  Receive Date: 20180301
  Receipt Date: 20190322
  Transmission Date: 20190417
  Serious: Yes (Other)
  Sender: FDA-Public Use
  Company Number: US-JNJFOC-20180127973

PATIENT
  Age: 65 Year
  Sex: Female
  Weight: 63.49 kg

DRUGS (26)
  1. IMBRUVICA [Suspect]
     Active Substance: IBRUTINIB
     Indication: CHRONIC LYMPHOCYTIC LEUKAEMIA
     Route: 048
  2. FLEXERIL [Concomitant]
     Active Substance: CYCLOBENZAPRINE HYDROCHLORIDE
     Indication: PAIN
  3. PREDNISONE. [Concomitant]
     Active Substance: PREDNISONE
  4. ATIVAN [Concomitant]
     Active Substance: LORAZEPAM
     Indication: ANXIETY
  5. IMBRUVICA [Suspect]
     Active Substance: IBRUTINIB
     Indication: CHRONIC LYMPHOCYTIC LEUKAEMIA
     Route: 048
     Dates: start: 20170501
  6. IMBRUVICA [Suspect]
     Active Substance: IBRUTINIB
     Indication: CHRONIC LYMPHOCYTIC LEUKAEMIA
     Route: 048
  7. IMBRUVICA [Suspect]
     Active Substance: IBRUTINIB
     Indication: CHRONIC LYMPHOCYTIC LEUKAEMIA
     Route: 048
     Dates: start: 20170501
  8. MORPHINE [Concomitant]
     Active Substance: MORPHINE
  9. LIDOCAINE. [Suspect]
     Active Substance: LIDOCAINE
     Indication: PAIN
     Route: 065
  10. OXYCODONE [Concomitant]
     Active Substance: OXYCODONE
     Indication: PAIN
  11. MULTIVITAMINS [Concomitant]
     Active Substance: VITAMINS
  12. FIORICET [Concomitant]
     Active Substance: ACETAMINOPHEN\BUTALBITAL\CAFFEINE
     Indication: PAIN
  13. LASIX [Concomitant]
     Active Substance: FUROSEMIDE
  14. IMBRUVICA [Suspect]
     Active Substance: IBRUTINIB
     Indication: CHRONIC LYMPHOCYTIC LEUKAEMIA
     Route: 048
     Dates: start: 20160101, end: 20180430
  15. TYLENOL [Concomitant]
     Active Substance: ACETAMINOPHEN
  16. AMPHETAMINE [Concomitant]
     Active Substance: AMPHETAMINE
     Indication: DEPRESSION
  17. SYNTHROID [Concomitant]
     Active Substance: LEVOTHYROXINE SODIUM
     Indication: HYPOTHYROIDISM
  18. PYRIDIUM [Concomitant]
     Active Substance: PHENAZOPYRIDINE
  19. IMBRUVICA [Suspect]
     Active Substance: IBRUTINIB
     Indication: CHRONIC LYMPHOCYTIC LEUKAEMIA
     Route: 048
     Dates: start: 20160101, end: 20180430
  20. AMPHETAMINE [Concomitant]
     Active Substance: AMPHETAMINE
     Indication: ATTENTION DEFICIT/HYPERACTIVITY DISORDER
  21. OXYCODONE AND ACETAMINOPHEN [Concomitant]
     Active Substance: ACETAMINOPHEN\OXYCODONE HYDROCHLORIDE
     Indication: PAIN
     Dosage: 10/325 MG
  22. VENTOLIN [Concomitant]
     Active Substance: ALBUTEROL SULFATE
     Indication: ASTHMA
  23. IBUPROFEN. [Concomitant]
     Active Substance: IBUPROFEN
  24. NEURONTIN [Concomitant]
     Active Substance: GABAPENTIN
     Indication: PAIN
  25. ASPIRIN. [Concomitant]
     Active Substance: ASPIRIN
     Indication: SUPPLEMENTATION THERAPY
  26. FOLIC ACID. [Concomitant]
     Active Substance: FOLIC ACID
     Indication: SUPPLEMENTATION THERAPY

REACTIONS (43)
  - Glaucoma [Unknown]
  - Immunodeficiency [Unknown]
  - Post procedural haematoma [Unknown]
  - White blood cell count abnormal [Unknown]
  - Asthenia [Unknown]
  - Injection site bruising [Not Recovered/Not Resolved]
  - Fatigue [Not Recovered/Not Resolved]
  - Cystitis interstitial [Not Recovered/Not Resolved]
  - Pancreas infection [Unknown]
  - Muscle spasms [Unknown]
  - Pain [Recovered/Resolved]
  - Kidney infection [Unknown]
  - Lung infection [Unknown]
  - Bacterial infection [Unknown]
  - Pneumonia [Recovered/Resolved]
  - Contusion [Not Recovered/Not Resolved]
  - Hepatic infection [Unknown]
  - Nodule [Unknown]
  - Depression [Unknown]
  - Haematochezia [Unknown]
  - Diarrhoea [Unknown]
  - Injection site haemorrhage [Unknown]
  - Stress [Unknown]
  - Bone pain [Unknown]
  - Increased tendency to bruise [Not Recovered/Not Resolved]
  - Red blood cell count decreased [Unknown]
  - Amnesia [Not Recovered/Not Resolved]
  - Hypoaesthesia [Not Recovered/Not Resolved]
  - Influenza [Recovered/Resolved]
  - Oropharyngeal pain [Unknown]
  - Pain in extremity [Not Recovered/Not Resolved]
  - Arthralgia [Unknown]
  - Feeling abnormal [Unknown]
  - Bacterial vaginosis [Unknown]
  - Malaise [Unknown]
  - Cataract [Not Recovered/Not Resolved]
  - Gastroenteritis viral [Recovered/Resolved]
  - Adverse event [Unknown]
  - Haemorrhoids [Unknown]
  - Inflammation [Recovered/Resolved]
  - Product dose omission [Unknown]
  - Bronchitis [Recovered/Resolved]
  - Cystitis [Unknown]

NARRATIVE: CASE EVENT DATE: 2016
